FAERS Safety Report 15553691 (Version 4)
Quarter: 2019Q1

REPORT INFORMATION
  Report Type: Report from Study
  Country: US (occurrence: US)
  Receive Date: 20181026
  Receipt Date: 20190311
  Transmission Date: 20190417
  Serious: Yes (Other)
  Sender: FDA-Public Use
  Company Number: US-EMD SERONO-E2B_90062870

PATIENT
  Sex: Female

DRUGS (6)
  1. REBIF [Suspect]
     Active Substance: INTERFERON BETA-1A
     Indication: MULTIPLE SCLEROSIS
     Route: 058
     Dates: start: 20020415, end: 20180831
  2. REBIF [Suspect]
     Active Substance: INTERFERON BETA-1A
     Route: 058
     Dates: start: 20181030
  3. XARELTO [Concomitant]
     Active Substance: RIVAROXABAN
     Indication: PRODUCT USED FOR UNKNOWN INDICATION
     Route: 042
  4. LOVENOX [Concomitant]
     Active Substance: ENOXAPARIN SODIUM
     Indication: PRODUCT USED FOR UNKNOWN INDICATION
     Dates: start: 2010
  5. PLAVIX [Concomitant]
     Active Substance: CLOPIDOGREL BISULFATE
     Indication: PRODUCT USED FOR UNKNOWN INDICATION
     Dates: start: 2010
  6. IMMUNOGLOBULIN                     /00025201/ [Concomitant]
     Active Substance: HUMAN IMMUNOGLOBULIN G
     Indication: PRODUCT USED FOR UNKNOWN INDICATION
     Dosage: INTRAVENOUS
     Dates: start: 1982

REACTIONS (17)
  - Anaemia [Not Recovered/Not Resolved]
  - Tremor [Unknown]
  - Pneumonia [Unknown]
  - Fall [Unknown]
  - Hernia [Unknown]
  - Cardiac disorder [Unknown]
  - Malaise [Unknown]
  - Autoimmune disorder [Recovering/Resolving]
  - Femur fracture [Unknown]
  - Wound infection pseudomonas [Recovered/Resolved]
  - Scar [Not Recovered/Not Resolved]
  - Complication associated with device [Unknown]
  - Superior vena cava syndrome [Not Recovered/Not Resolved]
  - Croup infectious [Not Recovered/Not Resolved]
  - Blood pressure fluctuation [Unknown]
  - Increased tendency to bruise [Not Recovered/Not Resolved]
  - Influenza [Unknown]

NARRATIVE: CASE EVENT DATE: 2003
